FAERS Safety Report 4823623-4 (Version None)
Quarter: 2005Q4

REPORT INFORMATION
  Report Type: 
  Country: None (occurrence: None)
  Receive Date: 20051109
  Receipt Date: 20040907
  Transmission Date: 20060501
  Serious: Yes (Other)
  Sender: FDA-Public Use
  Company Number: US-GLAXOSMITHKLINE-A0526387A

PATIENT
  Sex: Male

DRUGS (2)
  1. PAXIL CR [Suspect]
     Indication: DEPRESSION
     Dosage: 12.5MG PER DAY
     Route: 048
     Dates: start: 20030603
  2. XANAX [Concomitant]

REACTIONS (24)
  - ANGER [None]
  - ANXIETY [None]
  - BRUXISM [None]
  - CONFUSIONAL STATE [None]
  - DECREASED APPETITE [None]
  - DEPENDENCE [None]
  - DEPRESSION [None]
  - DRUG WITHDRAWAL SYNDROME [None]
  - EMOTIONAL DISORDER [None]
  - HALLUCINATION [None]
  - HEART RATE IRREGULAR [None]
  - HOMICIDAL IDEATION [None]
  - HYPOAESTHESIA [None]
  - INSOMNIA [None]
  - NEGATIVE THOUGHTS [None]
  - NIGHTMARE [None]
  - PAIN [None]
  - PANIC ATTACK [None]
  - PARAESTHESIA [None]
  - PARANOIA [None]
  - RETCHING [None]
  - SOCIAL AVOIDANT BEHAVIOUR [None]
  - SUICIDAL IDEATION [None]
  - TREMOR [None]
